FAERS Safety Report 16084949 (Version 2)
Quarter: 2019Q2

REPORT INFORMATION
  Report Type: Report from Study
  Country: US (occurrence: US)
  Receive Date: 20190318
  Receipt Date: 20190415
  Transmission Date: 20190711
  Serious: Yes (Hospitalization, Other)
  Sender: FDA-Public Use
  Company Number: US-SA-2017SA044510

PATIENT
  Age: 65 Year
  Sex: Female

DRUGS (2)
  1. INSULIN GLARGINE [Suspect]
     Active Substance: INSULIN GLARGINE
     Indication: TYPE 1 DIABETES MELLITUS
     Dosage: UNK UNK,QD
     Route: 058
     Dates: start: 2014
  2. INSULIN GLARGINE [Suspect]
     Active Substance: INSULIN GLARGINE
     Dosage: 30 U, QD
     Route: 058

REACTIONS (27)
  - Cerebrovascular accident [Recovering/Resolving]
  - Haemorrhage [Unknown]
  - Pain [Unknown]
  - Abdominal pain [Unknown]
  - Visual impairment [Unknown]
  - Deafness unilateral [Unknown]
  - Ill-defined disorder [Unknown]
  - Hypoacusis [Unknown]
  - Vomiting [Unknown]
  - Cerebrovascular accident [Unknown]
  - Seizure [Unknown]
  - Memory impairment [Unknown]
  - Sleep disorder [Unknown]
  - Gait inability [Not Recovered/Not Resolved]
  - Balance disorder [Unknown]
  - Drug hypersensitivity [Unknown]
  - Blood glucose increased [Not Recovered/Not Resolved]
  - Scoliosis [Unknown]
  - Fall [Unknown]
  - Head injury [Unknown]
  - Drug ineffective [Unknown]
  - Product dose omission [Unknown]
  - Fatigue [Unknown]
  - Cyst [Unknown]
  - Thyroid disorder [Unknown]
  - Headache [Unknown]
  - Hypoaesthesia [Unknown]

NARRATIVE: CASE EVENT DATE: 2015
